FAERS Safety Report 23631332 (Version 1)
Quarter: 2024Q1

REPORT INFORMATION
  Report Type: Spontaneous
  Country: US (occurrence: None)
  Receive Date: 20240313
  Receipt Date: 20240313
  Transmission Date: 20240409
  Serious: Yes (Hospitalization)
  Sender: FDA-Public Use
  Company Number: None

PATIENT
  Age: 59 Year
  Sex: Female

DRUGS (2)
  1. GLATOPA [Suspect]
     Active Substance: GLATIRAMER ACETATE
     Dosage: FREQUENCY : 3 TIMES A WEEK;?
  2. COPAXONE [Suspect]
     Active Substance: GLATIRAMER ACETATE

REACTIONS (5)
  - Syncope [None]
  - Head injury [None]
  - Craniocerebral injury [None]
  - Cerebral haemorrhage [None]
  - Seizure [None]

NARRATIVE: CASE EVENT DATE: 20240103
